FAERS Safety Report 7536157-3 (Version None)
Quarter: 2011Q2

REPORT INFORMATION
  Report Type: 
  Country: None (occurrence: None)
  Receive Date: 20110609
  Receipt Date: 20110531
  Transmission Date: 20111010
  Serious: Yes (Death, Other)
  Sender: FDA-Public Use
  Company Number: JP-AMGEN-JPNCT2011020833

PATIENT
  Age: 77 Year
  Sex: Male
  Weight: 48 kg

DRUGS (18)
  1. METHYCOBAL [Concomitant]
     Indication: NEUROPATHY PERIPHERAL
     Dosage: UNK
     Route: 042
  2. HIRUDOID [Concomitant]
     Dosage: UNK
     Route: 062
  3. FAMOTIDINE [Concomitant]
     Dosage: UNK
     Route: 042
  4. MIYA-BM [Concomitant]
     Indication: DIARRHOEA
     Dosage: UNK
     Route: 048
  5. CANDESARTAN CILEXETIL [Concomitant]
     Dosage: UNK
     Route: 048
  6. DECADRON [Concomitant]
     Dosage: UNK
     Route: 042
  7. FERO-GRADUMET [Concomitant]
     Dosage: UNK
     Route: 048
  8. RIBOFLAVIN TAB [Concomitant]
     Indication: STOMATITIS
     Dosage: UNK
     Route: 048
  9. PANITUMUMAB [Suspect]
     Dosage: 5 MG/KG, Q2WK
     Route: 041
     Dates: start: 20101105, end: 20110106
  10. CORTICOSTEROIDS [Concomitant]
     Indication: PROPHYLAXIS
     Dosage: UNK
     Route: 065
  11. PANITUMUMAB [Suspect]
     Indication: COLORECTAL CANCER
     Dosage: 6 MG, Q2WK
     Route: 042
     Dates: start: 20100930, end: 20101105
  12. NORVASC [Concomitant]
     Dosage: UNK
     Route: 048
  13. ANTIHISTAMINES [Concomitant]
     Indication: PROPHYLAXIS
     Dosage: UNK
     Route: 065
  14. POLARAMINE [Concomitant]
     Dosage: UNK
     Route: 042
  15. GLYCYRON [Concomitant]
     Dosage: UNK
     Route: 048
  16. KYTRIL [Concomitant]
     Dosage: UNK
     Route: 042
  17. DOXAZOSIN MESYLATE [Concomitant]
     Dosage: UNK
     Route: 048
  18. VITAMEDIN INTRAVENOUS [Concomitant]
     Indication: STOMATITIS
     Dosage: UNK
     Route: 042

REACTIONS (7)
  - DYSGEUSIA [None]
  - ANAL INFLAMMATION [None]
  - STOMATITIS [None]
  - DERMATITIS [None]
  - COLORECTAL CANCER [None]
  - CYSTITIS HAEMORRHAGIC [None]
  - DRY EYE [None]
